FAERS Safety Report 25844749 (Version 1)
Quarter: 2025Q3

REPORT INFORMATION
  Report Type: Spontaneous
  Country: US (occurrence: US)
  Receive Date: 20250925
  Receipt Date: 20250925
  Transmission Date: 20251021
  Serious: Yes (Other)
  Sender: ABBVIE
  Company Number: US-ABBVIE-6473821

PATIENT
  Age: 24 Year
  Sex: Female
  Weight: 68 kg

DRUGS (6)
  1. SYNTHROID [Suspect]
     Active Substance: LEVOTHYROXINE SODIUM
     Indication: Hypothyroidism
     Dosage: FORM STRENGTH: 88 MILLIGRAM
     Route: 048
     Dates: start: 2016
  2. SYNTHROID [Suspect]
     Active Substance: LEVOTHYROXINE SODIUM
     Indication: Hypothyroidism
     Dosage: FORM STRENGTH: 100 MILLIGRAM
     Route: 048
     Dates: start: 20250915
  3. SYNTHROID [Suspect]
     Active Substance: LEVOTHYROXINE SODIUM
     Indication: Hypothyroidism
     Dosage: FORM STRENGTH: 112 MILLIGRAM
     Route: 048
     Dates: start: 2005, end: 2016
  4. SYNTHROID [Suspect]
     Active Substance: LEVOTHYROXINE SODIUM
     Indication: Hypothyroidism
     Dosage: FORM STRENGTH: 125 MILLIGRAM
     Route: 048
     Dates: end: 20250801
  5. SYNTHROID [Suspect]
     Active Substance: LEVOTHYROXINE SODIUM
     Indication: Hypothyroidism
     Dosage: FORM STRENGTH: 112 MILLIGRAM
     Route: 048
     Dates: start: 20250801, end: 20250915
  6. WELLBUTRIN [Suspect]
     Active Substance: BUPROPION HYDROCHLORIDE
     Indication: Depression
     Route: 065
     Dates: start: 2019

REACTIONS (11)
  - Hiatus hernia [Recovered/Resolved]
  - Fatigue [Recovered/Resolved]
  - Weight increased [Recovering/Resolving]
  - Suicidal ideation [Recovered/Resolved]
  - Incorrect dose administered [Not Recovered/Not Resolved]
  - Thyroid hormones increased [Not Recovered/Not Resolved]
  - Suicidal ideation [Recovered/Resolved]
  - Migraine [Recovered/Resolved]
  - Gastrooesophageal reflux disease [Recovered/Resolved]
  - Suicide attempt [Recovered/Resolved]
  - Depression [Recovered/Resolved]

NARRATIVE: CASE EVENT DATE: 20050101
